FAERS Safety Report 8791807 (Version 3)
Quarter: 2012Q4

REPORT INFORMATION
  Report Type: 
  Country: US (occurrence: US)
  Receive Date: 20120918
  Receipt Date: 20120928
  Transmission Date: 20130627
  Serious: Yes (Other)
  Sender: FDA-Public Use
  Company Number: US-ABBOTT-12P-163-0980093-00

PATIENT
  Age: 57 None
  Sex: Male
  Weight: 89.89 kg

DRUGS (27)
  1. ANDROGEL [Suspect]
     Indication: BLOOD TESTOSTERONE DECREASED
  2. ANDROGEL [Suspect]
     Indication: FATIGUE
  3. ANDROGEL [Suspect]
     Indication: ASTHENIA
  4. ENBREL [Suspect]
     Indication: RHEUMATOID ARTHRITIS
  5. PLAQUENIL [Suspect]
     Indication: RHEUMATOID ARTHRITIS
  6. FOLIC ACID [Concomitant]
     Indication: PRODUCT USED FOR UNKNOWN INDICATION
  7. OMEPRAZOLE [Concomitant]
     Indication: GASTRIC DISORDER
  8. PHENERGAN [Concomitant]
     Indication: NAUSEA
  9. ASPIRIN [Concomitant]
     Indication: CARDIAC DISORDER
  10. ASPIRIN [Concomitant]
     Indication: HEART RATE ABNORMAL
  11. COQ10 [Concomitant]
     Indication: SUPPLEMENTATION THERAPY
  12. DIOVAN [Concomitant]
     Indication: HYPERTENSION
  13. CALCIUM + VITAMIN D [Concomitant]
     Indication: MINERAL SUPPLEMENTATION
  14. CITALOPRAM [Concomitant]
     Indication: DEPRESSION
  15. CARVEDILOL [Concomitant]
     Indication: CARDIAC DISORDER
  16. CARVEDILOL [Concomitant]
     Indication: HYPERTENSION
  17. AMITRIPTYLINE [Concomitant]
     Indication: PAIN
  18. AMITRIPTYLINE [Concomitant]
     Indication: SLEEP DISORDER THERAPY
  19. METHADONE [Concomitant]
     Indication: PAIN
  20. FOLBIC [Concomitant]
     Indication: PRODUCT USED FOR UNKNOWN INDICATION
  21. LIDODERM [Concomitant]
     Indication: PAIN
  22. FISH OIL [Concomitant]
     Indication: SUPPLEMENTATION THERAPY
  23. PERICOLACE [Concomitant]
     Indication: CONSTIPATION
  24. GAS X [Concomitant]
     Indication: FLATULENCE
  25. ALEVE [Concomitant]
     Indication: PAIN
  26. BISACODYL [Concomitant]
     Indication: CONSTIPATION
  27. IMITREX [Concomitant]
     Indication: MIGRAINE

REACTIONS (12)
  - Ejection fraction abnormal [Not Recovered/Not Resolved]
  - Herpes zoster [Recovered/Resolved]
  - Influenza [Recovered/Resolved]
  - Upper respiratory tract infection [Recovered/Resolved]
  - Chills [Recovered/Resolved]
  - Respiratory tract congestion [Recovered/Resolved]
  - Arthralgia [Not Recovered/Not Resolved]
  - Blood testosterone abnormal [Not Recovered/Not Resolved]
  - Acne [Recovered/Resolved]
  - Off label use [Unknown]
  - Fatigue [Unknown]
  - Asthenia [Unknown]
